FAERS Safety Report 23850030 (Version 1)
Quarter: 2024Q2

REPORT INFORMATION
  Report Type: Spontaneous
  Country: US (occurrence: None)
  Receive Date: 20240512
  Receipt Date: 20240512
  Transmission Date: 20240716
  Serious: No
  Sender: FDA-Public Use
  Company Number: None

PATIENT
  Age: 26 Year
  Sex: Female
  Weight: 59.4 kg

DRUGS (8)
  1. CAPLYTA [Suspect]
     Active Substance: LUMATEPERONE
     Indication: Depression
     Dosage: OTHER QUANTITY : 1 CAPSULE(S);?
     Route: 048
  2. CAPLYTA [Suspect]
     Active Substance: LUMATEPERONE
     Indication: Anxiety
  3. CAPLYTA [Suspect]
     Active Substance: LUMATEPERONE
     Indication: Mood swings
  4. Lamotirgene 200mg [Concomitant]
  5. Wellbutrin 150mg [Concomitant]
  6. DOXEPIN [Concomitant]
  7. NAPROXEN [Concomitant]
     Active Substance: NAPROXEN
  8. caplyta [Concomitant]

REACTIONS (16)
  - Feeling cold [None]
  - Paraesthesia [None]
  - Burning sensation [None]
  - Dizziness [None]
  - Disorientation [None]
  - Insomnia [None]
  - Headache [None]
  - Nausea [None]
  - Photophobia [None]
  - Migraine [None]
  - Neck pain [None]
  - Decreased appetite [None]
  - Anxiety [None]
  - Tachyphrenia [None]
  - Asthenia [None]
  - Restless legs syndrome [None]

NARRATIVE: CASE EVENT DATE: 20240511
